FAERS Safety Report 5525311-8 (Version None)
Quarter: 2007Q4

REPORT INFORMATION
  Report Type: 
  Country: None (occurrence: None)
  Receive Date: 20071114
  Receipt Date: 20071002
  Transmission Date: 20080405
  Serious: Yes (Disabling)
  Sender: FDA-Public Use
  Company Number: ALK_00413_2007

PATIENT
  Sex: Female
  Weight: 63.5036 kg

DRUGS (5)
  1. VIVITROL [Suspect]
     Indication: ALCOHOLISM
     Dosage: (380 MG 1X/MONTH INTRAMUSCULAR)
     Route: 030
     Dates: start: 20070611, end: 20070611
  2. SULFONAMIDE [Suspect]
     Indication: DRUG USE FOR UNKNOWN INDICATION
     Dates: start: 20070701
  3. EFFEXOR XR [Concomitant]
  4. CAMPRAL [Concomitant]
  5. QUETIAPINE [Concomitant]

REACTIONS (5)
  - DRUG HYPERSENSITIVITY [None]
  - IMPAIRED WORK ABILITY [None]
  - INJECTION SITE ERYTHEMA [None]
  - INJECTION SITE INDURATION [None]
  - INJECTION SITE REACTION [None]
